FAERS Safety Report 4761524-0 (Version None)
Quarter: 2005Q3

REPORT INFORMATION
  Report Type: 
  Country: None (occurrence: None)
  Receive Date: 20050906
  Receipt Date: 20050826
  Transmission Date: 20060218
  Serious: Yes (Other)
  Sender: FDA-Public Use
  Company Number: 2005UW12675

PATIENT
  Sex: Male

DRUGS (4)
  1. ATENOLOL [Suspect]
     Indication: BLOOD PRESSURE
     Route: 048
  2. AVODART [Interacting]
     Indication: BENIGN PROSTATIC HYPERPLASIA
     Route: 048
     Dates: start: 20050623, end: 20050701
  3. ACE INHIBITOR [Interacting]
     Indication: BLOOD PRESSURE
  4. AGGRENOX [Concomitant]

REACTIONS (4)
  - DIZZINESS [None]
  - DRUG INTERACTION [None]
  - HYPOTENSION [None]
  - SYNCOPE [None]
